FAERS Safety Report 24900850 (Version 1)
Quarter: 2025Q1

REPORT INFORMATION
  Report Type: Spontaneous
  Country: US (occurrence: US)
  Receive Date: 20250129
  Receipt Date: 20250129
  Transmission Date: 20250409
  Serious: No
  Sender: BAUSCH AND LOMB
  Company Number: US-BAUSCH-BL-2025-000884

PATIENT
  Age: 43 Year
  Sex: Female

DRUGS (1)
  1. TRETINOIN [Suspect]
     Active Substance: TRETINOIN
     Indication: Acne
     Route: 065

REACTIONS (2)
  - Skin burning sensation [Unknown]
  - Erythema [Unknown]
